FAERS Safety Report 4901031-5 (Version None)
Quarter: 2006Q1

REPORT INFORMATION
  Report Type: 
  Country: None (occurrence: None)
  Receive Date: 20060201
  Receipt Date: 20060118
  Transmission Date: 20060701
  Serious: Yes (Hospitalization)
  Sender: FDA-Public Use
  Company Number: FR200601002787

PATIENT
  Age: 31 Year
  Sex: Female

DRUGS (7)
  1. GEMZAR [Suspect]
     Indication: BREAST CANCER
     Dosage: INTRAVENOUS
     Route: 042
     Dates: start: 20051014, end: 20051125
  2. HERCEPTIN [Concomitant]
  3. PROPFENID (KETOPROFEN) [Concomitant]
  4. CELEBREX [Concomitant]
  5. EFFERALGAN CODEINE (CODEINE PHOSPHATE, PARACETAMOL) [Concomitant]
  6. RIVOTRIL /NOR/ (CLONAZEPAM) [Concomitant]
  7. NEURONTIN [Concomitant]

REACTIONS (4)
  - DRUG HYPERSENSITIVITY [None]
  - EYE OEDEMA [None]
  - EYELID OEDEMA [None]
  - FACE OEDEMA [None]
